FAERS Safety Report 18075865 (Version 1)
Quarter: 2020Q3

REPORT INFORMATION
  Report Type: Spontaneous
  Country: US (occurrence: JP)
  Receive Date: 20200727
  Receipt Date: 20200727
  Transmission Date: 20201103
  Serious: No
  Sender: FDA-Public Use
  Company Number: US-ABBVIE-20K-087-3460437-00

PATIENT
  Sex: Male

DRUGS (3)
  1. THYRADIN?S [Suspect]
     Active Substance: LEVOTHYROXINE
     Indication: PRODUCT USED FOR UNKNOWN INDICATION
     Dosage: PILL FORM
     Route: 065
     Dates: start: 2020, end: 2020
  2. THYRADIN?S [Suspect]
     Active Substance: LEVOTHYROXINE
     Dosage: POWDER FORM
     Route: 065
     Dates: start: 2020
  3. SYNTHROID [Suspect]
     Active Substance: LEVOTHYROXINE SODIUM
     Indication: PRODUCT USED FOR UNKNOWN INDICATION
     Route: 048
     Dates: start: 2008, end: 202002

REACTIONS (4)
  - Feeling abnormal [Unknown]
  - Alopecia [Unknown]
  - Fatigue [Unknown]
  - Disturbance in attention [Unknown]

NARRATIVE: CASE EVENT DATE: 2020
